FAERS Safety Report 7409297-7 (Version None)
Quarter: 2011Q2

REPORT INFORMATION
  Report Type: 
  Country: None (occurrence: None)
  Receive Date: 20110412
  Receipt Date: 20110405
  Transmission Date: 20111010
  Serious: Yes (Disabling)
  Sender: FDA-Public Use
  Company Number: B0711434A

PATIENT
  Sex: Female
  Weight: 56 kg

DRUGS (15)
  1. METHOTREXATE [Concomitant]
     Indication: IMMUNOSUPPRESSION
     Dosage: 10MG PER DAY
     Route: 065
     Dates: start: 20100326, end: 20100331
  2. PREDONINE [Concomitant]
     Indication: IMMUNOSUPPRESSION
     Dosage: 25MG PER DAY
     Route: 065
     Dates: start: 20100427, end: 20100614
  3. GANCICLOVIR SODIUM [Concomitant]
     Dosage: 250MG PER DAY
     Dates: start: 20100317, end: 20100423
  4. LASTET [Suspect]
     Indication: ALLOGENIC BONE MARROW TRANSPLANTATION THERAPY
     Dosage: 100MGM2 PER DAY
     Route: 042
     Dates: start: 20100321, end: 20100323
  5. METHIONINE [Concomitant]
     Dosage: 20ML PER DAY
     Route: 042
     Dates: start: 20100316, end: 20100517
  6. MYCOPHENOLATE MOFETIL [Concomitant]
     Indication: IMMUNOSUPPRESSION
     Dosage: 1000MG PER DAY
     Route: 048
     Dates: start: 20100401, end: 20100622
  7. GASTER D [Concomitant]
     Dosage: 20MG PER DAY
     Route: 048
     Dates: start: 20100318
  8. BAKTAR [Concomitant]
     Dosage: 4G PER DAY
     Route: 048
     Dates: start: 20100318
  9. ALKERAN [Suspect]
     Indication: ALLOGENIC BONE MARROW TRANSPLANTATION THERAPY
     Dosage: 70MGM2 PER DAY
     Route: 042
     Dates: start: 20100315, end: 20100315
  10. FLUDARA [Concomitant]
     Indication: ALLOGENIC BONE MARROW TRANSPLANTATION THERAPY
     Dosage: 30MGM2 PER DAY
     Route: 042
     Dates: start: 20100318, end: 20100323
  11. ALKERAN [Suspect]
     Dosage: 70MGM2 PER DAY
     Route: 042
     Dates: start: 20100322, end: 20100323
  12. METHYLPREDNISOLONE [Concomitant]
     Indication: IMMUNOSUPPRESSION
     Dosage: 25MG PER DAY
     Route: 065
     Dates: start: 20100326, end: 20100427
  13. PRODIF [Concomitant]
     Dosage: 200MG PER DAY
     Route: 042
     Dates: start: 20100321, end: 20100516
  14. TACROLIMUS HYDRATE [Concomitant]
     Indication: IMMUNOSUPPRESSION
     Dosage: 1MG PER DAY
     Route: 065
     Dates: start: 20100324
  15. BROACT [Concomitant]
     Dosage: 1000MG PER DAY
     Route: 042
     Dates: start: 20100321, end: 20100407

REACTIONS (1)
  - MUCOUS MEMBRANE DISORDER [None]
